FAERS Safety Report 7900511-8 (Version None)
Quarter: 2011Q4

REPORT INFORMATION
  Report Type: 
  Country: None (occurrence: None)
  Receive Date: 20111108
  Receipt Date: 20111028
  Transmission Date: 20120403
  Serious: Yes (Hospitalization, Other)
  Sender: FDA-Public Use
  Company Number: US-PFIZER INC-2011269648

PATIENT
  Sex: Female

DRUGS (2)
  1. ARGATROBAN [Suspect]
     Dosage: 0.125 MCG/KG/MIN, UNK
     Route: 042
     Dates: start: 20111019
  2. WARFARIN [Concomitant]

REACTIONS (1)
  - INTERNATIONAL NORMALISED RATIO INCREASED [None]
